FAERS Safety Report 6698015-6 (Version None)
Quarter: 2010Q2

REPORT INFORMATION
  Report Type: 
  Country: None (occurrence: None)
  Receive Date: 20100427
  Receipt Date: 20100315
  Transmission Date: 20101027
  Serious: Yes (Other)
  Sender: FDA-Public Use
  Company Number: US-BAYER-200942907NA

PATIENT
  Age: 26 Year
  Sex: Female
  Weight: 48 kg

DRUGS (3)
  1. YAZ [Suspect]
     Indication: CONTRACEPTION
     Route: 048
     Dates: start: 20090801, end: 20091215
  2. PROTONIX [Concomitant]
  3. MULTI-VITAMIN [Concomitant]

REACTIONS (3)
  - KIDNEY INFECTION [None]
  - RENAL PAIN [None]
  - URINARY TRACT INFECTION [None]
